FAERS Safety Report 6741235-2 (Version None)
Quarter: 2010Q2

REPORT INFORMATION
  Report Type: 
  Country: None (occurrence: None)
  Receive Date: 20100526
  Receipt Date: 20100518
  Transmission Date: 20101027
  Serious: Yes (Hospitalization)
  Sender: FDA-Public Use
  Company Number: FR-WYE-G06143410

PATIENT
  Sex: Male

DRUGS (10)
  1. EFFEXOR XR [Suspect]
     Indication: MENTAL DISORDER
     Route: 048
     Dates: start: 20100101, end: 20100101
  2. CLOZAPINE [Suspect]
     Indication: MENTAL DISORDER
     Dosage: 300 MG TOTAL DAILY
     Route: 048
     Dates: start: 20090101, end: 20100101
  3. CLOZAPINE [Suspect]
     Route: 048
     Dates: start: 20100101, end: 20100101
  4. CLOZAPINE [Suspect]
     Dosage: 300 MG TOTAL DAILY
     Route: 048
     Dates: start: 20100101
  5. LOXAPAC [Suspect]
     Indication: MENTAL DISORDER
     Route: 048
     Dates: start: 20100101, end: 20100101
  6. DEPAKOTE [Suspect]
     Indication: MENTAL DISORDER
     Dosage: 500 MG TOTAL DAILY
     Route: 048
     Dates: start: 20090101, end: 20100101
  7. DEPAKOTE [Suspect]
     Route: 048
     Dates: start: 20100101, end: 20100101
  8. DEPAKOTE [Suspect]
     Dosage: 500 MG TOTAL DAILY
     Route: 048
     Dates: start: 20100101
  9. THERALENE [Suspect]
     Indication: MENTAL DISORDER
     Route: 048
     Dates: start: 20100101, end: 20100101
  10. RIVOTRIL [Suspect]
     Indication: MENTAL DISORDER
     Route: 048
     Dates: start: 20100101, end: 20100101

REACTIONS (2)
  - LOSS OF CONSCIOUSNESS [None]
  - RESPIRATORY FAILURE [None]
